FAERS Safety Report 23663589 (Version 3)
Quarter: 2025Q3

REPORT INFORMATION
  Report Type: Spontaneous
  Country: US (occurrence: US)
  Receive Date: 20240322
  Receipt Date: 20250723
  Transmission Date: 20251021
  Serious: No
  Sender: SANOFI AVENTIS
  Company Number: US-SA-SAC20240321000101

PATIENT
  Sex: Female

DRUGS (1)
  1. DUPIXENT [Suspect]
     Active Substance: DUPILUMAB
     Indication: Dermatitis atopic
     Dosage: 300 MG, QOW
     Route: 058

REACTIONS (16)
  - Memory impairment [Unknown]
  - Weight decreased [Unknown]
  - Skin disorder [Unknown]
  - Skin ulcer [Unknown]
  - Asthenia [Unknown]
  - Balance disorder [Unknown]
  - Fall [Unknown]
  - Depression [Unknown]
  - Swelling [Not Recovered/Not Resolved]
  - Rash pustular [Not Recovered/Not Resolved]
  - Pruritus [Not Recovered/Not Resolved]
  - Skin burning sensation [Not Recovered/Not Resolved]
  - Arthralgia [Unknown]
  - Rash [Not Recovered/Not Resolved]
  - Dermatitis atopic [Not Recovered/Not Resolved]
  - Product administered at inappropriate site [Unknown]
